FAERS Safety Report 4810777-9 (Version None)
Quarter: 2005Q4

REPORT INFORMATION
  Report Type: 
  Country: None (occurrence: None)
  Receive Date: 20051026
  Receipt Date: 20040923
  Transmission Date: 20060501
  Serious: Yes (Life-Threatening)
  Sender: FDA-Public Use
  Company Number: US-BOEHRINGER INGELHEIM PHARMACEUTICALS, INC.-2004-DE-04947GD

PATIENT
  Age: 47 Year
  Sex: Male
  Weight: 112 kg

DRUGS (6)
  1. CLONIDINE [Suspect]
     Route: 062
  2. ATENOLOL [Suspect]
  3. CLONAZEPAM [Suspect]
  4. NIMBEX [Suspect]
  5. PROPOFOL [Suspect]
  6. FENTANYL [Suspect]

REACTIONS (7)
  - AGITATION [None]
  - CONFUSIONAL STATE [None]
  - DELIRIUM [None]
  - DISORIENTATION [None]
  - DISTURBANCE IN ATTENTION [None]
  - ELECTROCARDIOGRAM QT CORRECTED INTERVAL PROLONGED [None]
  - HYPOTENSION [None]
